FAERS Safety Report 9274756 (Version 1)
Quarter: 2013Q2

REPORT INFORMATION
  Report Type: Spontaneous
  Country: US (occurrence: None)
  Receive Date: 20130430
  Receipt Date: 20130430
  Transmission Date: 20140414
  Serious: No
  Sender: FDA-Public Use
  Company Number: None

PATIENT
  Age: 49 Year
  Sex: Male
  Weight: 106.6 kg

DRUGS (1)
  1. CYMBALTA [Suspect]

REACTIONS (4)
  - Tremor [None]
  - Hyperhidrosis [None]
  - Hypertension [None]
  - Constipation [None]
